FAERS Safety Report 10802435 (Version 2)
Quarter: 2015Q1

REPORT INFORMATION
  Report Type: Spontaneous
  Country: US (occurrence: US)
  Receive Date: 20150217
  Receipt Date: 20150302
  Transmission Date: 20150721
  Serious: Yes (Hospitalization, Other)
  Sender: FDA-Public Use
  Company Number: US-SA-2015SA018256

PATIENT
  Age: 73 Year
  Sex: Female
  Weight: 81.64 kg

DRUGS (2)
  1. LANTUS SOLOSTAR [Suspect]
     Active Substance: INSULIN GLARGINE
     Indication: TYPE 2 DIABETES MELLITUS
     Dosage: DOSE: DEPENDS ON COUNT
     Route: 065
     Dates: start: 20010610
  2. SOLOSTAR [Concomitant]
     Active Substance: DEVICE
     Indication: TYPE 2 DIABETES MELLITUS
     Dates: start: 20010610

REACTIONS (5)
  - Renal disorder [Unknown]
  - Cardiac disorder [Unknown]
  - Drug administration error [Unknown]
  - Injury associated with device [Unknown]
  - Escherichia infection [Unknown]

NARRATIVE: CASE EVENT DATE: 2011
